FAERS Safety Report 10222559 (Version 3)
Quarter: 2015Q2

REPORT INFORMATION
  Report Type: Spontaneous
  Country: US (occurrence: US)
  Receive Date: 20140606
  Receipt Date: 20150629
  Transmission Date: 20150821
  Serious: No
  Sender: FDA-Public Use
  Company Number: US-MYLANLABS-2013S1019527

PATIENT
  Age: 49 Year
  Sex: Female
  Weight: 83.92 kg

DRUGS (18)
  1. LEVOTHYROXINE [Concomitant]
     Active Substance: LEVOTHYROXINE
     Dosage: 125 ?G,AM
  2. SALT [Concomitant]
     Active Substance: SODIUM CHLORIDE
     Dosage: 3.4 G,AM
  3. FLORINEF ACETATE [Concomitant]
     Active Substance: FLUDROCORTISONE ACETATE
     Dosage: .15 UNK,QD
  4. KLOR-CON [Concomitant]
     Active Substance: POTASSIUM CHLORIDE
     Dosage: 60 MEQ,BID
  5. B100 [Concomitant]
     Dosage: UNK UNK,AM
  6. PREGNENOLONE [Concomitant]
     Active Substance: PREGNENOLONE
     Dosage: 20 MG,AM
  7. DOXEPIN HYDROCHLORIDE CAPSULES, USP [Suspect]
     Active Substance: DOXEPIN HYDROCHLORIDE
     Indication: OFF LABEL USE
     Dosage: UNK
  8. ARMOUR THYROID [Concomitant]
     Active Substance: THYROID, PORCINE\THYROID, UNSPECIFIED
     Dosage: 75 MG,QD
  9. SODIUM CHLORIDE. [Concomitant]
     Active Substance: SODIUM CHLORIDE
     Dosage: 2 L,BIWEEKLY
     Route: 042
  10. DOXEPIN HYDROCHLORIDE CAPSULES, USP [Suspect]
     Active Substance: DOXEPIN HYDROCHLORIDE
     Dosage: UNK
  11. ADRENAL COMPLEX [Concomitant]
     Dosage: UNK UNK,AM
  12. DOXEPIN HYDROCHLORIDE CAPSULES, USP [Suspect]
     Active Substance: DOXEPIN HYDROCHLORIDE
     Dosage: UNK
  13. FIXMYSKIN HEALING BALM VANILLA FRAGRANCE [Concomitant]
     Active Substance: HYDROCORTISONE
     Dosage: 25 MG,QD
  14. MINERAL SUPPLEMENTS [Concomitant]
     Active Substance: UNSPECIFIED INGREDIENT
     Dosage: UNK UNK,AM
  15. DOXEPIN HYDROCHLORIDE CAPSULES, USP [Suspect]
     Active Substance: DOXEPIN HYDROCHLORIDE
     Indication: INSOMNIA
     Dosage: 50 MG,HS
     Route: 048
  16. DOXEPIN HYDROCHLORIDE CAPSULES, USP [Suspect]
     Active Substance: DOXEPIN HYDROCHLORIDE
     Dosage: UNK
  17. DHEA [Concomitant]
     Active Substance: DEHYDROEPIANDROSTERONE-3-SULFATE SODIUM
     Dosage: 5 MG,AM
  18. VITAMINS [Concomitant]
     Active Substance: VITAMINS
     Dosage: UNK UNK,AM

REACTIONS (3)
  - Hypersensitivity [Not Recovered/Not Resolved]
  - Reaction to drug excipients [Not Recovered/Not Resolved]
  - Muscle spasms [Not Recovered/Not Resolved]

NARRATIVE: CASE EVENT DATE: 20130820
